FAERS Safety Report 4942900-X (Version None)
Quarter: 2006Q1

REPORT INFORMATION
  Report Type: 
  Country: None (occurrence: None)
  Receive Date: 20060309
  Receipt Date: 20060222
  Transmission Date: 20060701
  Serious: No
  Sender: FDA-Public Use
  Company Number: DE-2005-023130

PATIENT
  Age: 62 Year
  Sex: Male

DRUGS (4)
  1. BETAFERON(INTERFERON BETA - 1B) INJECTION, 250UG [Suspect]
     Indication: MULTIPLE SCLEROSIS
     Dosage: 250UG, EVERY 2D, SUBCUTANEOUS
     Route: 058
     Dates: start: 19950101, end: 20060219
  2. RYTMONORM (PROPAFENONE HYDROCHLORIDE) [Concomitant]
  3. UROXATRAL [Concomitant]
  4. ASPIRIN [Concomitant]

REACTIONS (6)
  - FEELING COLD [None]
  - GRANULOMA [None]
  - INJECTION SITE INFLAMMATION [None]
  - INJECTION SITE NECROSIS [None]
  - PAIN [None]
  - SKIN NECROSIS [None]
